FAERS Safety Report 26026517 (Version 1)
Quarter: 2025Q4

REPORT INFORMATION
  Report Type: Spontaneous
  Country: US (occurrence: US)
  Receive Date: 20251111
  Receipt Date: 20251111
  Transmission Date: 20260117
  Serious: No
  Sender: ROCHE
  Company Number: US-ROCHE-10000430198

PATIENT
  Sex: Female

DRUGS (5)
  1. XOLAIR PFS [Suspect]
     Active Substance: OMALIZUMAB
     Indication: Idiopathic urticaria
     Dosage: STRENGTH: 150 MG/ML
     Route: 058
     Dates: start: 202501
  2. XOLAIR PFS [Suspect]
     Active Substance: OMALIZUMAB
  3. DIPHENHYDRAMINE [Concomitant]
     Active Substance: DIPHENHYDRAMINE
  4. HIZENTRA 20 % PFS (10 GM TOTAL) [Concomitant]
     Dosage: 20 % PFS (10 GM TOTAL)
  5. HIZENTRA 20 % PFS (10 GM TOTAL) [Concomitant]
     Dosage: 20 % PFS (2GM TOTAL)

REACTIONS (1)
  - Urticaria [Unknown]
